FAERS Safety Report 19958221 (Version 4)
Quarter: 2022Q1

REPORT INFORMATION
  Report Type: Spontaneous
  Country: US (occurrence: US)
  Receive Date: 20211015
  Receipt Date: 20220105
  Transmission Date: 20220423
  Serious: Yes (Other)
  Sender: FDA-Public Use
  Company Number: US-SUNOVION-2021SUN003901

PATIENT
  Age: 82 Year
  Sex: Female

DRUGS (1)
  1. LONHALA MAGNAIR [Suspect]
     Active Substance: GLYCOPYRROLATE
     Dosage: 25 ?G
     Route: 055

REACTIONS (31)
  - Diabetes mellitus [Unknown]
  - Glaucoma [Unknown]
  - Cataract [Unknown]
  - Urinary retention [Unknown]
  - General physical health deterioration [Unknown]
  - Asthenia [Unknown]
  - COVID-19 [Unknown]
  - Gait disturbance [Unknown]
  - Blood glucose fluctuation [Unknown]
  - Insomnia [Unknown]
  - Weight decreased [Unknown]
  - Hypoacusis [Unknown]
  - Visual impairment [Unknown]
  - Full blood count abnormal [Unknown]
  - Confusional state [Unknown]
  - Eye contusion [Unknown]
  - Illness [Unknown]
  - Concussion [Unknown]
  - Blood glucose decreased [Recovered/Resolved]
  - Fall [Unknown]
  - Cough [Unknown]
  - Fatigue [Unknown]
  - Asthma [Unknown]
  - Lung disorder [Unknown]
  - Fear [Unknown]
  - Chronic obstructive pulmonary disease [Unknown]
  - Device issue [Unknown]
  - Product label issue [Unknown]
  - Product dose omission issue [Unknown]
  - Incorrect dose administered by device [Unknown]
  - Therapy interrupted [Unknown]
